FAERS Safety Report 15241749 (Version 1)
Quarter: 2018Q3

REPORT INFORMATION
  Report Type: Report from Study
  Country: US (occurrence: US)
  Receive Date: 20180805
  Receipt Date: 20180805
  Transmission Date: 20181010
  Serious: No
  Sender: FDA-Public Use
  Company Number: US-AMGEN-USASL2018105718

PATIENT
  Sex: Female

DRUGS (2)
  1. ENBREL [Suspect]
     Active Substance: ETANERCEPT
     Indication: PSORIATIC ARTHROPATHY
     Dosage: 50 MG, UNK
     Route: 065
  2. METHOTREXATE. [Concomitant]
     Active Substance: METHOTREXATE
     Dosage: UNK, INCREASED

REACTIONS (5)
  - Arthropathy [Unknown]
  - Migraine with aura [Not Recovered/Not Resolved]
  - Joint swelling [Unknown]
  - Nasopharyngitis [Unknown]
  - Drug effect incomplete [Unknown]
